FAERS Safety Report 4686482-9 (Version None)
Quarter: 2005Q2

REPORT INFORMATION
  Report Type: 
  Country: None (occurrence: None)
  Receive Date: 20050609
  Receipt Date: 20050530
  Transmission Date: 20051028
  Serious: Yes (Hospitalization)
  Sender: FDA-Public Use
  Company Number: IT-SANOFI-SYNTHELABO-F01200500843

PATIENT
  Sex: Female
  Weight: 68 kg

DRUGS (3)
  1. OXALIPLATIN [Suspect]
     Indication: RECTAL CANCER
     Route: 042
     Dates: start: 20040915, end: 20040915
  2. CAPECITABINE [Suspect]
     Dosage: 825 MG/M2 TWICE DAILY FOR 5 DAYS OF WEEKS 1 TO 5
     Route: 048
     Dates: start: 20040915, end: 20040918
  3. RADIOTHERAPY [Suspect]
     Indication: COLORECTAL CANCER
     Dosage: 43.2 GY
     Route: 050
     Dates: start: 20040920, end: 20040920

REACTIONS (4)
  - ABDOMINAL PAIN [None]
  - ANASTOMOTIC LEAK [None]
  - PYREXIA [None]
  - WOUND DEHISCENCE [None]
